FAERS Safety Report 10083246 (Version 1)
Quarter: 2014Q2

REPORT INFORMATION
  Report Type: Spontaneous
  Country: US (occurrence: None)
  Receive Date: 20140416
  Receipt Date: 20140416
  Transmission Date: 20141212
  Serious: Yes (Death)
  Sender: FDA-Public Use
  Company Number: None

PATIENT
  Age: 52 Year
  Sex: Female
  Weight: 61.24 kg

DRUGS (7)
  1. BEE POLLEN CAPSULE 250 MG [Suspect]
     Indication: WEIGHT LOSS DIET
     Dosage: UNKNOWN MONTHS
  2. SIBUTRAMINE [Suspect]
  3. XANAX [Concomitant]
  4. BUMEX [Concomitant]
  5. RANITIDINE [Concomitant]
  6. LEVOTHYROXINE [Concomitant]
  7. HCTZ [Concomitant]

REACTIONS (1)
  - Cardiac arrest [None]
